FAERS Safety Report 6192880-7 (Version None)
Quarter: 2009Q2

REPORT INFORMATION
  Report Type: 
  Country: None (occurrence: None)
  Receive Date: 20090514
  Receipt Date: 20090501
  Transmission Date: 20091009
  Serious: Yes (Hospitalization)
  Sender: FDA-Public Use
  Company Number: 2009SP001144

PATIENT
  Sex: Female
  Weight: 33.6 kg

DRUGS (20)
  1. XOPENEX HFA [Suspect]
     Indication: ASTHMA
     Dosage: 45 UG; QID; INHALATION; PRN; INHALATION; 90 UG; BID; INHALATION
     Dates: start: 20070101, end: 20090101
  2. XOPENEX HFA [Suspect]
     Indication: CHRONIC OBSTRUCTIVE PULMONARY DISEASE
     Dosage: 45 UG; QID; INHALATION; PRN; INHALATION; 90 UG; BID; INHALATION
     Dates: start: 20070101, end: 20090101
  3. XOPENEX HFA [Suspect]
     Indication: ASTHMA
     Dosage: 45 UG; QID; INHALATION; PRN; INHALATION; 90 UG; BID; INHALATION
     Dates: start: 20090101, end: 20090201
  4. XOPENEX HFA [Suspect]
     Indication: CHRONIC OBSTRUCTIVE PULMONARY DISEASE
     Dosage: 45 UG; QID; INHALATION; PRN; INHALATION; 90 UG; BID; INHALATION
     Dates: start: 20090101, end: 20090201
  5. XOPENEX HFA [Suspect]
     Indication: ASTHMA
     Dosage: 45 UG; QID; INHALATION; PRN; INHALATION; 90 UG; BID; INHALATION
     Dates: start: 20090201
  6. XOPENEX HFA [Suspect]
     Indication: CHRONIC OBSTRUCTIVE PULMONARY DISEASE
     Dosage: 45 UG; QID; INHALATION; PRN; INHALATION; 90 UG; BID; INHALATION
     Dates: start: 20090201
  7. XOPENEX [Suspect]
     Indication: ASTHMA
     Dosage: PRN; INHALATION; INHALATION; 1.25 MG/3ML; PRN; INHALATION; 1.25 MG/3ML; BID; INHALATION
     Dates: start: 20070101, end: 20080101
  8. XOPENEX [Suspect]
     Indication: CHRONIC OBSTRUCTIVE PULMONARY DISEASE
     Dosage: PRN; INHALATION; INHALATION; 1.25 MG/3ML; PRN; INHALATION; 1.25 MG/3ML; BID; INHALATION
     Dates: start: 20070101, end: 20080101
  9. XOPENEX [Suspect]
     Indication: ASTHMA
     Dosage: PRN; INHALATION; INHALATION; 1.25 MG/3ML; PRN; INHALATION; 1.25 MG/3ML; BID; INHALATION
     Dates: start: 20090101, end: 20090101
  10. XOPENEX [Suspect]
     Indication: CHRONIC OBSTRUCTIVE PULMONARY DISEASE
     Dosage: PRN; INHALATION; INHALATION; 1.25 MG/3ML; PRN; INHALATION; 1.25 MG/3ML; BID; INHALATION
     Dates: start: 20090101, end: 20090101
  11. XOPENEX [Suspect]
     Indication: ASTHMA
     Dosage: PRN; INHALATION; INHALATION; 1.25 MG/3ML; PRN; INHALATION; 1.25 MG/3ML; BID; INHALATION
     Dates: start: 20090201, end: 20090201
  12. XOPENEX [Suspect]
     Indication: CHRONIC OBSTRUCTIVE PULMONARY DISEASE
     Dosage: PRN; INHALATION; INHALATION; 1.25 MG/3ML; PRN; INHALATION; 1.25 MG/3ML; BID; INHALATION
     Dates: start: 20090201, end: 20090201
  13. XOPENEX [Suspect]
     Indication: ASTHMA
     Dosage: PRN; INHALATION; INHALATION; 1.25 MG/3ML; PRN; INHALATION; 1.25 MG/3ML; BID; INHALATION
     Dates: start: 20090201
  14. XOPENEX [Suspect]
     Indication: CHRONIC OBSTRUCTIVE PULMONARY DISEASE
     Dosage: PRN; INHALATION; INHALATION; 1.25 MG/3ML; PRN; INHALATION; 1.25 MG/3ML; BID; INHALATION
     Dates: start: 20090201
  15. SPIRIVA [Suspect]
     Dosage: QD
     Dates: start: 20090101, end: 20090101
  16. COMBIVENT [Suspect]
     Dosage: QID; INHALATION; INHALATION
     Dates: end: 20070101
  17. COMBIVENT [Suspect]
     Dosage: QID; INHALATION; INHALATION
     Dates: start: 20090101, end: 20090201
  18. OXYGEN [Concomitant]
  19. ATENOLOL [Concomitant]
  20. DILTIAZEM [Concomitant]

REACTIONS (12)
  - ALOPECIA [None]
  - BLOOD PRESSURE INCREASED [None]
  - DECREASED APPETITE [None]
  - DYSURIA [None]
  - FATIGUE [None]
  - NAUSEA [None]
  - PNEUMONIA [None]
  - PRURITUS [None]
  - PULMONARY CONGESTION [None]
  - SCRATCH [None]
  - URTICARIA [None]
  - WEIGHT DECREASED [None]
